FAERS Safety Report 20626190 (Version 1)
Quarter: 2022Q1

REPORT INFORMATION
  Report Type: Spontaneous
  Country: US (occurrence: US)
  Receive Date: 20220323
  Receipt Date: 20220323
  Transmission Date: 20220423
  Serious: Yes (Hospitalization)
  Sender: FDA-Public Use
  Company Number: US-PROCTER_AND_GAMBLE-GS22022991

PATIENT
  Age: 37 Year
  Sex: Male

DRUGS (1)
  1. HEAD AND SHOULDERS GREEN APPLE 2IN1 [Suspect]
     Active Substance: PYRITHIONE ZINC
     Dosage: A QUARTER SIZE AMOUNT, EVERYDAY
     Route: 061
     Dates: end: 20220304

REACTIONS (6)
  - Hypersensitivity [Unknown]
  - Pharyngeal swelling [Recovering/Resolving]
  - Throat tightness [Recovering/Resolving]
  - Swelling face [Recovering/Resolving]
  - Swelling [Recovering/Resolving]
  - Urticaria [Recovering/Resolving]

NARRATIVE: CASE EVENT DATE: 20220304
